FAERS Safety Report 10344023 (Version 1)
Quarter: 2014Q3

REPORT INFORMATION
  Report Type: Spontaneous
  Country: IN (occurrence: None)
  Receive Date: 20140724
  Receipt Date: 20140724
  Transmission Date: 20150326
  Serious: Yes (Other)
  Sender: FDA-Public Use
  Company Number: UCM201407-000129

PATIENT

DRUGS (4)
  1. TEMOZOLOMIDE [Suspect]
     Active Substance: TEMOZOLOMIDE
     Indication: BRAIN NEOPLASM MALIGNANT
  2. ETOPOSIDE (ETOPOSIDE) (ETOPOSIDE) [Suspect]
     Active Substance: ETOPOSIDE
     Indication: BRAIN NEOPLASM MALIGNANT
  3. ISOTRETINOIN [Suspect]
     Active Substance: ISOTRETINOIN
     Indication: BRAIN NEOPLASM MALIGNANT
  4. DIVALPROEX SODIUM. [Suspect]
     Active Substance: DIVALPROEX SODIUM
     Indication: BRAIN NEOPLASM MALIGNANT

REACTIONS (1)
  - Myelodysplastic syndrome [None]
